FAERS Safety Report 10778059 (Version 9)
Quarter: 2015Q2

REPORT INFORMATION
  Report Type: Report from Study
  Country: DE (occurrence: DE)
  Receive Date: 20150209
  Receipt Date: 20150428
  Transmission Date: 20150821
  Serious: Yes (Hospitalization)
  Sender: FDA-Public Use
  Company Number: DE-MERCK-1502DEU002709

PATIENT
  Age: 65 Year
  Sex: Female
  Weight: 60 kg

DRUGS (33)
  1. FLORA FLORADIX IRON PLUS HERBS LIQUID [Concomitant]
     Indication: ROUTINE HEALTH MAINTENANCE
     Dosage: 15 ML, TID
     Route: 048
     Dates: start: 20131121
  2. CRANESBILL [Concomitant]
     Indication: ROUTINE HEALTH MAINTENANCE
     Dosage: 5 MG, BID
     Route: 048
     Dates: start: 20131121
  3. BETALOC ZOK [Concomitant]
     Active Substance: METOPROLOL SUCCINATE
     Indication: HYPERTENSION
     Dosage: 47.5MG, QD
     Route: 048
     Dates: start: 20140403
  4. UBIDECARENONE [Concomitant]
     Active Substance: UBIDECARENONE
     Indication: ROUTINE HEALTH MAINTENANCE
     Dosage: UNK, QD
     Route: 048
     Dates: start: 20131121
  5. DANDELION [Concomitant]
     Active Substance: TARAXACUM OFFICINALE POLLEN
     Indication: ROUTINE HEALTH MAINTENANCE
     Dosage: 5 GTT, BID
     Route: 048
     Dates: start: 20131121
  6. TILIDIN [Concomitant]
     Active Substance: NALOXONE HYDROCHLORIDE\TILIDINE HYDROCHLORIDE
     Indication: ARTHRALGIA
     Dosage: 50 MG, BID, STRENGTH 50/4 MG
     Route: 048
     Dates: start: 20150112, end: 20150119
  7. ZINKOROTAT [Concomitant]
     Indication: ROUTINE HEALTH MAINTENANCE
     Dosage: UNK, QOD
     Route: 048
     Dates: start: 20131121
  8. PEPPERMINT. [Concomitant]
     Active Substance: PEPPERMINT
     Indication: ROUTINE HEALTH MAINTENANCE
     Dosage: 5 GTT, BID
     Route: 048
     Dates: start: 20131121
  9. CORODIN [Concomitant]
     Indication: HYPOTENSION
     Dosage: TOTAL DAILY DOSE: 5GTT, PRN
     Route: 048
     Dates: start: 20131121
  10. VERGENTAN [Concomitant]
     Indication: NAUSEA
     Dosage: 1 TABLET, BID
     Route: 048
     Dates: start: 201401
  11. L-THYROXIN [Concomitant]
     Active Substance: LEVOTHYROXINE SODIUM
     Indication: HYPOTHYROIDISM
     Dosage: 175 MG, QD
     Route: 048
     Dates: start: 20150121
  12. PEMBROLIZUMAB. [Suspect]
     Active Substance: PEMBROLIZUMAB
     Dosage: UNK, Q3W
     Route: 042
     Dates: start: 20150210, end: 20150210
  13. CITALOPRAM [Concomitant]
     Active Substance: CITALOPRAM HYDROBROMIDE
     Indication: PANIC DISORDER
  14. TISSO PRO DIALVIT [Concomitant]
     Indication: ROUTINE HEALTH MAINTENANCE
     Dosage: UNK, BID
     Dates: start: 20131121
  15. FENOFIBRATE. [Concomitant]
     Active Substance: FENOFIBRATE
     Indication: HYPERLIPIDAEMIA
     Dosage: 250 MG, QD
     Route: 048
     Dates: start: 20140827
  16. PEMBROLIZUMAB. [Suspect]
     Active Substance: PEMBROLIZUMAB
     Dosage: UNK, Q3W
     Route: 042
     Dates: start: 20150120, end: 20150120
  17. MIRTAZAPINE. [Concomitant]
     Active Substance: MIRTAZAPINE
     Indication: ANXIETY
     Dosage: 15 MG, QD
     Route: 048
     Dates: start: 201008
  18. DEKRISTOL [Concomitant]
     Active Substance: CHOLECALCIFEROL
     Indication: ROUTINE HEALTH MAINTENANCE
     Dosage: 2.6 IU, QW
     Route: 048
     Dates: start: 20131121
  19. ANGELICA [Concomitant]
     Indication: ROUTINE HEALTH MAINTENANCE
     Dosage: 5 GTT, BID
     Route: 048
     Dates: start: 20131121
  20. L-THYROXIN [Concomitant]
     Active Substance: LEVOTHYROXINE SODIUM
     Indication: HYPOTHYROIDISM
     Dosage: 150 MICROGRAM, QD
     Route: 048
     Dates: start: 20140827, end: 20150120
  21. NOVALGIN (DIPYRONE) [Concomitant]
     Active Substance: DIPYRONE
     Indication: ARTHRALGIA
     Dosage: TOTAL DAILY DOSE: 500MG; PRN
     Route: 048
     Dates: start: 20150112, end: 20150119
  22. PEMBROLIZUMAB. [Suspect]
     Active Substance: PEMBROLIZUMAB
     Dosage: UNK, Q3W
     Route: 042
     Dates: start: 20150305
  23. TISSO PRO BASAN COMPLETE [Concomitant]
     Indication: ROUTINE HEALTH MAINTENANCE
     Dosage: 2 G, QD
     Route: 048
     Dates: start: 20131121
  24. TISSO PRO CURMIN COMPLETE II [Concomitant]
     Indication: ROUTINE HEALTH MAINTENANCE
     Dosage: UNK, QD
     Route: 048
     Dates: start: 20131121
  25. MAGNESIUM (UNSPECIFIED) [Concomitant]
     Active Substance: MAGNESIUM
     Indication: ROUTINE HEALTH MAINTENANCE
     Dosage: UNK, QD
     Route: 048
     Dates: start: 20131121
  26. SEA SALT [Concomitant]
     Active Substance: SEA SALT
     Indication: ROUTINE HEALTH MAINTENANCE
     Dosage: UNK, TID
     Route: 048
     Dates: start: 20131121
  27. PANTOZOL [Concomitant]
     Active Substance: PANTOPRAZOLE SODIUM
     Indication: PROPHYLAXIS
     Dosage: 20 MG, QD
     Route: 048
     Dates: start: 20141124
  28. PEMBROLIZUMAB. [Suspect]
     Active Substance: PEMBROLIZUMAB
     Indication: MALIGNANT MELANOMA
     Dosage: UNK, Q3W
     Route: 042
     Dates: start: 20131030, end: 20141229
  29. CITALOPRAM [Concomitant]
     Active Substance: CITALOPRAM HYDROBROMIDE
     Indication: ANXIETY
     Dosage: 20 MG, QD
     Route: 048
     Dates: start: 201008
  30. TISSO PRO SIRTUSAN [Concomitant]
     Indication: ROUTINE HEALTH MAINTENANCE
     Dosage: QD
     Route: 048
     Dates: start: 20131121
  31. TISSO PRO EM SAN [Concomitant]
     Indication: ROUTINE HEALTH MAINTENANCE
     Dosage: 30 ML, QD
     Route: 048
     Dates: start: 20131121
  32. ASS 100 [Concomitant]
     Active Substance: ASPIRIN
     Indication: ANTICOAGULANT THERAPY
     Dosage: 100 MG, QD
     Route: 048
     Dates: start: 20141124
  33. EMESAN [Concomitant]
     Indication: NAUSEA
     Dosage: TOTAL DAILY DOSE: 50MG, PRN
     Route: 048
     Dates: start: 201201

REACTIONS (2)
  - Presyncope [Recovered/Resolved]
  - Epilepsy [Recovered/Resolved]

NARRATIVE: CASE EVENT DATE: 20150131
